FAERS Safety Report 14862094 (Version 1)
Quarter: 2018Q2

REPORT INFORMATION
  Report Type: Spontaneous
  Country: US (occurrence: US)
  Receive Date: 20180508
  Receipt Date: 20180508
  Transmission Date: 20180711
  Serious: Yes (Other)
  Sender: FDA-Public Use
  Company Number: PHHY2018US070613

PATIENT
  Age: 47 Year
  Sex: Female

DRUGS (1)
  1. OXCARBAZEPINE. [Suspect]
     Active Substance: OXCARBAZEPINE
     Indication: PRODUCT USED FOR UNKNOWN INDICATION
     Dosage: UNK
     Route: 065

REACTIONS (7)
  - Lymphocytosis [Unknown]
  - Duodenitis [Unknown]
  - Eosinophilia [Unknown]
  - Eosinophilic colitis [Unknown]
  - Intestinal intraepithelial lymphocytes increased [Unknown]
  - Collagen disorder [Unknown]
  - Diarrhoea [Unknown]
